FAERS Safety Report 21243234 (Version 1)
Quarter: 2022Q3

REPORT INFORMATION
  Report Type: Spontaneous
  Country: US (occurrence: None)
  Receive Date: 20220822
  Receipt Date: 20220822
  Transmission Date: 20221026
  Serious: Yes (Other)
  Sender: FDA-Public Use
  Company Number: None

PATIENT
  Age: 72 Year
  Sex: Female
  Weight: 70.65 kg

DRUGS (8)
  1. POMALYST [Suspect]
     Active Substance: POMALIDOMIDE
     Indication: Plasma cell myeloma
     Dosage: OTHER FREQUENCY : QD X21D OFF 7 DAY;?
     Route: 048
     Dates: start: 20220608
  2. ACYCLOVIR [Concomitant]
     Active Substance: ACYCLOVIR
  3. AJOVY [Concomitant]
     Active Substance: FREMANEZUMAB-VFRM
  4. ALLOPURINOL [Concomitant]
     Active Substance: ALLOPURINOL
  5. AMBIEN [Concomitant]
     Active Substance: ZOLPIDEM TARTRATE
  6. CELEXA [Concomitant]
     Active Substance: CITALOPRAM HYDROBROMIDE
  7. CRESTOR [Concomitant]
     Active Substance: ROSUVASTATIN CALCIUM
  8. LINZESS [Concomitant]
     Active Substance: LINACLOTIDE

REACTIONS (3)
  - Tremor [None]
  - Hyperhidrosis [None]
  - Back pain [None]

NARRATIVE: CASE EVENT DATE: 20220822
